FAERS Safety Report 10610642 (Version 3)
Quarter: 2015Q3

REPORT INFORMATION
  Report Type: Report from Study
  Country: CA (occurrence: CA)
  Receive Date: 20141126
  Receipt Date: 20150714
  Transmission Date: 20151125
  Serious: Yes (Hospitalization, Other)
  Sender: FDA-Public Use
  Company Number: PHHY2014CA148737

PATIENT
  Sex: Male

DRUGS (2)
  1. GLEEVEC [Suspect]
     Active Substance: IMATINIB MESYLATE
     Indication: MYELOID LEUKAEMIA
     Dosage: 400 MG, QD
     Route: 048
     Dates: start: 2001
  2. GLEEVEC [Interacting]
     Active Substance: IMATINIB MESYLATE
     Dosage: 500 MG, UNK
     Route: 048

REACTIONS (5)
  - Attention deficit/hyperactivity disorder [Unknown]
  - Drug abuse [Unknown]
  - Bipolar II disorder [Unknown]
  - Blood disorder [Unknown]
  - Depression [Unknown]
